FAERS Safety Report 17484347 (Version 1)
Quarter: 2020Q1

REPORT INFORMATION
  Report Type: Spontaneous
  Country: US (occurrence: US)
  Receive Date: 20200219
  Receipt Date: 20200219
  Transmission Date: 20200409
  Serious: Yes (Other)
  Sender: FDA-Public Use
  Company Number: None

PATIENT
  Age: 59 Year
  Sex: Female

DRUGS (24)
  1. CYCLOBENZAPRINE. [Concomitant]
     Active Substance: CYCLOBENZAPRINE
  2. HUMULIN NOS [Concomitant]
     Active Substance: INSULIN HUMAN
  3. SPIRONOLACTONE. [Concomitant]
     Active Substance: SPIRONOLACTONE
  4. VARENICLINE [Concomitant]
     Active Substance: VARENICLINE
  5. DUONEB [Concomitant]
     Active Substance: ALBUTEROL SULFATE\IPRATROPIUM BROMIDE
  6. OPSUMIT [Suspect]
     Active Substance: MACITENTAN
     Indication: PULMONARY ARTERIAL HYPERTENSION
     Route: 048
     Dates: start: 201902
  7. ADVAIR HFA [Concomitant]
     Active Substance: FLUTICASONE PROPIONATE\SALMETEROL XINAFOATE
  8. MELATONIN [Concomitant]
     Active Substance: MELATONIN
  9. GABAPENTIN. [Concomitant]
     Active Substance: GABAPENTIN
  10. BUMEX [Concomitant]
     Active Substance: BUMETANIDE
  11. LIDOCAINE TOP PATCH [Concomitant]
  12. LOSARTAN. [Concomitant]
     Active Substance: LOSARTAN
  13. NARCAN [Concomitant]
     Active Substance: NALOXONE HYDROCHLORIDE
  14. ASPIRIN. [Concomitant]
     Active Substance: ASPIRIN
  15. SILDENAFIL. [Concomitant]
     Active Substance: SILDENAFIL
  16. HYDROCHLOROTHIAZIDE. [Concomitant]
     Active Substance: HYDROCHLOROTHIAZIDE
  17. TRAMADOL. [Concomitant]
     Active Substance: TRAMADOL
  18. VENTOLIN HFA [Concomitant]
     Active Substance: ALBUTEROL SULFATE
  19. PANTOPRAZOLE [Concomitant]
     Active Substance: PANTOPRAZOLE
  20. TYVASO [Concomitant]
     Active Substance: TREPROSTINIL
  21. LIPITOR [Concomitant]
     Active Substance: ATORVASTATIN CALCIUM
  22. NORCO [Concomitant]
     Active Substance: ACETAMINOPHEN\HYDROCODONE BITARTRATE
  23. NICODERM CQ [Concomitant]
     Active Substance: NICOTINE
  24. DICLOFENAC TOP GEL [Concomitant]

REACTIONS (2)
  - Neck pain [None]
  - Muscle spasms [None]

NARRATIVE: CASE EVENT DATE: 20200120
